FAERS Safety Report 23508202 (Version 2)
Quarter: 2024Q1

REPORT INFORMATION
  Report Type: Report from Study
  Country: US (occurrence: None)
  Receive Date: 20240209
  Receipt Date: 20240326
  Transmission Date: 20240409
  Serious: Yes (Other)
  Sender: FDA-Public Use
  Company Number: 2024A023920

PATIENT
  Age: 68 Year
  Sex: Female
  Weight: 59 kg

DRUGS (5)
  1. TEZSPIRE [Suspect]
     Active Substance: TEZEPELUMAB-EKKO
     Indication: Asthma
     Route: 058
  2. FARXIGA [Suspect]
     Active Substance: DAPAGLIFLOZIN PROPANEDIOL
     Route: 048
  3. OMEPRAZOLE [Suspect]
     Active Substance: OMEPRAZOLE
     Route: 048
  4. FASENRA [Suspect]
     Active Substance: BENRALIZUMAB
     Route: 058
  5. BACTRIM [Suspect]
     Active Substance: SULFAMETHOXAZOLE\TRIMETHOPRIM

REACTIONS (28)
  - Glycosylated haemoglobin increased [Unknown]
  - Dysphonia [Recovering/Resolving]
  - Vitamin D deficiency [Unknown]
  - Asthma [Unknown]
  - Dyspnoea exertional [Unknown]
  - Asthenia [Unknown]
  - Oropharyngeal pain [Unknown]
  - Insomnia [Unknown]
  - Gait disturbance [Unknown]
  - Depressed mood [Unknown]
  - Loss of personal independence in daily activities [Unknown]
  - Fatigue [Unknown]
  - Dizziness [Unknown]
  - COVID-19 [Unknown]
  - Anxiety [Unknown]
  - Palpitations [Unknown]
  - Back pain [Unknown]
  - Abnormal faeces [Unknown]
  - Pollakiuria [Unknown]
  - Orthopnoea [Unknown]
  - Lung disorder [Unknown]
  - Arthralgia [Unknown]
  - Osteopenia [Unknown]
  - Dyspepsia [Unknown]
  - Dyspepsia [Unknown]
  - Cardiovascular disorder [Unknown]
  - Depression [Unknown]
  - Inability to afford medication [Unknown]
